FAERS Safety Report 9105456 (Version 1)
Quarter: 2013Q1

REPORT INFORMATION
  Report Type: Spontaneous
  Country: US (occurrence: US)
  Receive Date: 20130220
  Receipt Date: 20130220
  Transmission Date: 20140127
  Serious: Yes (Death, Hospitalization)
  Sender: FDA-Public Use
  Company Number: US-JNJFOC-20130206611

PATIENT
  Age: 41 Year
  Sex: Male

DRUGS (2)
  1. TYLENOL NO 3 [Suspect]
     Indication: PRODUCT USED FOR UNKNOWN INDICATION
     Route: 048
  2. ALCOHOLIC [Suspect]
     Indication: PRODUCT USED FOR UNKNOWN INDICATION
     Route: 048

REACTIONS (10)
  - Acute hepatic failure [Fatal]
  - Accidental overdose [Fatal]
  - Hepatic necrosis [Fatal]
  - Renal failure [Fatal]
  - Platelet count decreased [Fatal]
  - Encephalopathy [None]
  - International normalised ratio increased [None]
  - Conjunctival haemorrhage [None]
  - Coagulopathy [None]
  - Multi-organ failure [None]
